FAERS Safety Report 4280904-3 (Version None)
Quarter: 2004Q1

REPORT INFORMATION
  Report Type: 
  Country: None (occurrence: None)
  Receive Date: 20040129
  Receipt Date: 20031209
  Transmission Date: 20041129
  Serious: Yes (Other)
  Sender: FDA-Public Use
  Company Number: JP-GLAXOSMITHKLINE-B0317747A

PATIENT
  Age: 26 Year
  Sex: Female

DRUGS (1)
  1. VALACICLOVIR [Suspect]
     Indication: HERPES SIMPLEX
     Dosage: 1000MG PER DAY
     Route: 048
     Dates: start: 20031118, end: 20031121

REACTIONS (4)
  - ENCEPHALOPATHY [None]
  - HEADACHE [None]
  - MUSCLE RIGIDITY [None]
  - SEDATION [None]
